FAERS Safety Report 5255942-4 (Version None)
Quarter: 2007Q1

REPORT INFORMATION
  Report Type: 
  Country: None (occurrence: None)
  Receive Date: 20061204
  Receipt Date: 20061003
  Transmission Date: 20070707
  Serious: No
  Sender: FDA-Public Use
  Company Number: 2006-BP-10899BP

PATIENT
  Age: 72 Year
  Sex: Female
  Weight: 45.36 kg

DRUGS (6)
  1. SPIRIVA [Suspect]
     Indication: CHRONIC OBSTRUCTIVE PULMONARY DISEASE
     Dosage: 18 MCG (18 MCG, Q AM), IH
     Route: 055
     Dates: start: 20060801
  2. XOPENEX [Suspect]
     Indication: CHRONIC OBSTRUCTIVE PULMONARY DISEASE
     Dosage: SEE TEXT (90 MCG, 2 PUFFS Q4-6H), IH
     Route: 055
     Dates: start: 20060801
  3. ATIVAN [Concomitant]
  4. NORVASC [Concomitant]
  5. SINGULAIR [Concomitant]
  6. HERBAL SUPPLEMENT (ALL OTHER THERAPEUTIC PRODUCTS) [Concomitant]

REACTIONS (4)
  - CHILLS [None]
  - DIZZINESS [None]
  - DYSGEUSIA [None]
  - WHEEZING [None]
